FAERS Safety Report 7032276-9 (Version None)
Quarter: 2010Q4

REPORT INFORMATION
  Report Type: 
  Country: None (occurrence: None)
  Receive Date: 20101007
  Receipt Date: 20100504
  Transmission Date: 20110411
  Serious: Yes (Hospitalization)
  Sender: FDA-Public Use
  Company Number: TH-BRISTOL-MYERS SQUIBB COMPANY-15100423

PATIENT
  Sex: Male

DRUGS (4)
  1. CETUXIMAB [Suspect]
     Indication: OESOPHAGEAL SQUAMOUS CELL CARCINOMA
     Dosage: RECENT INF: 12APR2010
     Route: 042
     Dates: start: 20100226
  2. CISPLATIN [Suspect]
     Indication: OESOPHAGEAL SQUAMOUS CELL CARCINOMA
     Dosage: RECENT INF:12APR2010
     Route: 042
     Dates: start: 20100226
  3. FLUOROURACIL [Suspect]
     Indication: OESOPHAGEAL SQUAMOUS CELL CARCINOMA
     Dosage: RECENT INF:20APR2010
     Route: 042
     Dates: start: 20100419
  4. RADIOTHERAPY [Suspect]
     Indication: OESOPHAGEAL SQUAMOUS CELL CARCINOMA
     Dosage: 1DF:60CGY RECENT DOSE:13APR2010
     Dates: start: 20100226

REACTIONS (1)
  - ACUTE MYOCARDIAL INFARCTION [None]
